FAERS Safety Report 8366804-8 (Version None)
Quarter: 2012Q2

REPORT INFORMATION
  Report Type: 
  Country: None (occurrence: None)
  Receive Date: 20120516
  Receipt Date: 20120516
  Transmission Date: 20120825
  Serious: No
  Sender: FDA-Public Use
  Company Number: None

PATIENT
  Age: 34 Year
  Sex: Female
  Weight: 65.1 kg

DRUGS (1)
  1. ISOVUE-300 [Suspect]
     Indication: COMPUTERISED TOMOGRAM
     Dosage: 120 ML IV X 1
     Route: 042
     Dates: start: 20120223

REACTIONS (5)
  - PRURITUS [None]
  - LACRIMATION INCREASED [None]
  - URTICARIA [None]
  - SNEEZING [None]
  - CONTRAST MEDIA REACTION [None]
